FAERS Safety Report 14594656 (Version 2)
Quarter: 2018Q2

REPORT INFORMATION
  Report Type: Report from Study
  Country: US (occurrence: US)
  Receive Date: 20180302
  Receipt Date: 20180507
  Transmission Date: 20180711
  Serious: Yes (Hospitalization)
  Sender: FDA-Public Use
  Company Number: US-ACTELION-A-NJ2018-168237

PATIENT
  Age: 62 Year
  Sex: Female

DRUGS (11)
  1. LEXAPRO [Concomitant]
     Active Substance: ESCITALOPRAM OXALATE
  2. CARVEDILOL. [Concomitant]
     Active Substance: CARVEDILOL
  3. LANTUS [Concomitant]
     Active Substance: INSULIN GLARGINE
  4. OPSUMIT [Suspect]
     Active Substance: MACITENTAN
     Indication: PULMONARY ARTERIAL HYPERTENSION
     Dosage: 10 MG, UNK
     Route: 048
  5. SPIRONOLACTONE. [Concomitant]
     Active Substance: SPIRONOLACTONE
  6. BREO ELLIPTA [Concomitant]
     Active Substance: FLUTICASONE FUROATE\VILANTEROL TRIFENATATE
  7. SINGULAIR [Concomitant]
     Active Substance: MONTELUKAST SODIUM
  8. ALBUTEROL. [Concomitant]
     Active Substance: ALBUTEROL
  9. PLAVIX [Concomitant]
     Active Substance: CLOPIDOGREL BISULFATE
  10. HUMALOG [Concomitant]
     Active Substance: INSULIN LISPRO
  11. IMDUR [Concomitant]
     Active Substance: ISOSORBIDE MONONITRATE

REACTIONS (9)
  - Chronic obstructive pulmonary disease [Unknown]
  - Wound [Unknown]
  - Fall [Unknown]
  - Pain [Unknown]
  - Influenza [Unknown]
  - Pyrexia [Unknown]
  - Drug dose omission [Unknown]
  - Peripheral swelling [Unknown]
  - Therapy non-responder [Unknown]
